FAERS Safety Report 13608796 (Version 2)
Quarter: 2017Q3

REPORT INFORMATION
  Report Type: Spontaneous
  Country: FR (occurrence: FR)
  Receive Date: 20170602
  Receipt Date: 20170801
  Transmission Date: 20171127
  Serious: Yes (Disabling)
  Sender: FDA-Public Use
  Company Number: FR-BAYER-2017-100307

PATIENT
  Age: 26 Year
  Sex: Female

DRUGS (1)
  1. MIRENA [Suspect]
     Active Substance: LEVONORGESTREL
     Indication: CONTRACEPTION
     Dosage: 20 MCG/24HR, CONT
     Route: 015
     Dates: start: 20150108, end: 20170529

REACTIONS (9)
  - Autonomic nervous system imbalance [Unknown]
  - Diffuse alopecia [Unknown]
  - Back pain [Recovered/Resolved]
  - Generalised anxiety disorder [Recovering/Resolving]
  - Abdominal pain lower [Recovered/Resolved]
  - Asthenia [Recovered/Resolved]
  - Tachycardia [Unknown]
  - Breast pain [Recovered/Resolved]
  - Migraine [Recovered/Resolved]

NARRATIVE: CASE EVENT DATE: 201509
